FAERS Safety Report 6573269-5 (Version None)
Quarter: 2010Q1

REPORT INFORMATION
  Report Type: 
  Country: None (occurrence: None)
  Receive Date: 20100208
  Receipt Date: 20100203
  Transmission Date: 20100710
  Serious: Yes (Death)
  Sender: FDA-Public Use
  Company Number: JP-SANOFI-AVENTIS-2010SA006771

PATIENT
  Age: 81 Year
  Sex: Male

DRUGS (2)
  1. PLAVIX [Suspect]
     Route: 048
     Dates: start: 20080622, end: 20090514
  2. ASPIRIN [Concomitant]
     Route: 065
     Dates: start: 20080614, end: 20090514

REACTIONS (1)
  - INTERSTITIAL LUNG DISEASE [None]
